FAERS Safety Report 6967354-3 (Version None)
Quarter: 2010Q3

REPORT INFORMATION
  Report Type: 
  Country: None (occurrence: None)
  Receive Date: 20100823
  Receipt Date: 20100430
  Transmission Date: 20110219
  Serious: No
  Sender: FDA-Public Use
  Company Number: 011222

PATIENT
  Sex: Male
  Weight: 72.7 kg

DRUGS (4)
  1. CIMZIA [Suspect]
     Indication: CROHN'S DISEASE
     Dosage: (SUBCUTANEOUS)
     Route: 058
  2. IRON [Concomitant]
  3. COMBINATIONS OF VITAMINS [Concomitant]
  4. PENTASA [Concomitant]

REACTIONS (4)
  - BLOOD PRESSURE INCREASED [None]
  - GASTROINTESTINAL INFLAMMATION [None]
  - GLARE [None]
  - PYREXIA [None]
